FAERS Safety Report 10823798 (Version 1)
Quarter: 2015Q1

REPORT INFORMATION
  Report Type: Report from Study
  Country: US (occurrence: US)
  Receive Date: 20150219
  Receipt Date: 20150219
  Transmission Date: 20150721
  Serious: Yes (Other)
  Sender: FDA-Public Use
  Company Number: US-ABBVIE-14K-163-1311944-00

PATIENT
  Sex: Female

DRUGS (2)
  1. HUMIRA [Suspect]
     Active Substance: ADALIMUMAB
     Indication: PSORIATIC ARTHROPATHY
     Route: 065
     Dates: start: 2005, end: 2012
  2. HUMIRA [Suspect]
     Active Substance: ADALIMUMAB
     Indication: PSORIASIS
     Route: 065
     Dates: start: 2014

REACTIONS (9)
  - Knee arthroplasty [Unknown]
  - Joint crepitation [Not Recovered/Not Resolved]
  - Hip arthroplasty [Unknown]
  - Crohn^s disease [Not Recovered/Not Resolved]
  - Hip arthroplasty [Unknown]
  - Drug effect decreased [Unknown]
  - Fall [Unknown]
  - Joint injury [Unknown]
  - Arthralgia [Not Recovered/Not Resolved]

NARRATIVE: CASE EVENT DATE: 2012
